FAERS Safety Report 6786505-7 (Version None)
Quarter: 2010Q2

REPORT INFORMATION
  Report Type: 
  Country: None (occurrence: None)
  Receive Date: 20100623
  Receipt Date: 20100616
  Transmission Date: 20101027
  Serious: No
  Sender: FDA-Public Use
  Company Number: B0661482A

PATIENT
  Sex: Female
  Weight: 64.5 kg

DRUGS (2)
  1. TYKERB [Suspect]
     Indication: BREAST CANCER METASTATIC
     Dosage: 2500MG PER DAY
     Route: 048
     Dates: start: 20100424, end: 20100610
  2. CAPECITABINE [Concomitant]
     Indication: BREAST CANCER METASTATIC
     Dosage: 2000MGM2 PER DAY
     Route: 048

REACTIONS (3)
  - HEPATOTOXICITY [None]
  - OVERDOSE [None]
  - RASH [None]
